FAERS Safety Report 15313047 (Version 1)
Quarter: 2018Q3

REPORT INFORMATION
  Report Type: Spontaneous
  Country: US (occurrence: US)
  Receive Date: 20180814
  Receipt Date: 20180814
  Transmission Date: 20181010
  Serious: Yes (Disabling)
  Sender: FDA-Public Use
  Company Number: None

PATIENT
  Age: 64 Year
  Sex: Female
  Weight: 78.75 kg

DRUGS (1)
  1. MELOXICAM 15MG [Suspect]
     Active Substance: MELOXICAM
     Indication: ARTHRITIS
     Dosage: ?          QUANTITY:1 TABLET(S);?
     Route: 048
     Dates: start: 20150518, end: 20180728

REACTIONS (4)
  - Pain [None]
  - Dysstasia [None]
  - Stress [None]
  - Respiratory disorder [None]
